FAERS Safety Report 5627338-4 (Version None)
Quarter: 2008Q1

REPORT INFORMATION
  Report Type: 
  Country: None (occurrence: None)
  Receive Date: 20080215
  Receipt Date: 20080206
  Transmission Date: 20080703
  Serious: Yes (Other)
  Sender: FDA-Public Use
  Company Number: US-JNJFOC-20080202010

PATIENT
  Sex: Male
  Weight: 136.08 kg

DRUGS (10)
  1. DURAGESIC-100 [Suspect]
     Indication: PAIN IN EXTREMITY
     Route: 062
  2. PERCOCET [Concomitant]
     Indication: BREAKTHROUGH PAIN
     Route: 048
  3. SOMA [Concomitant]
     Indication: MUSCLE SPASMS
     Route: 048
  4. XANAX [Concomitant]
     Indication: ANXIETY
     Route: 048
  5. HUMALOG [Concomitant]
     Indication: DIABETES MELLITUS
     Route: 058
  6. LISINOPRIL [Concomitant]
     Indication: BLOOD PRESSURE
     Route: 048
  7. MAGNESIUM [Concomitant]
     Indication: MEDICAL DIET
     Route: 048
  8. ZOCOR [Concomitant]
     Indication: BLOOD CHOLESTEROL
     Route: 048
  9. GLUCOPHAGE [Concomitant]
     Indication: DIABETES MELLITUS
     Route: 048
  10. NEURONTIN [Concomitant]
     Indication: NEUROPATHY PERIPHERAL
     Route: 048

REACTIONS (3)
  - EXPIRED DRUG ADMINISTERED [None]
  - INADEQUATE ANALGESIA [None]
  - INFECTED SKIN ULCER [None]
